FAERS Safety Report 7315935-X (Version None)
Quarter: 2011Q1

REPORT INFORMATION
  Report Type: 
  Country: None (occurrence: None)
  Receive Date: 20110225
  Receipt Date: 20110218
  Transmission Date: 20110831
  Serious: Yes (Other)
  Sender: FDA-Public Use
  Company Number: US-US-EMD SERONO, INC.-7013060

PATIENT
  Sex: Female
  Weight: 100 kg

DRUGS (3)
  1. TOPAMAX [Concomitant]
  2. TRAMADOL [Concomitant]
  3. REBIF [Suspect]
     Indication: MULTIPLE SCLEROSIS
     Route: 058
     Dates: start: 20060824, end: 20101020

REACTIONS (4)
  - BLOOD CHOLESTEROL INCREASED [None]
  - ARTHRALGIA [None]
  - NEUTRALISING ANTIBODIES [None]
  - UVEITIS [None]
